FAERS Safety Report 7553666-1 (Version None)
Quarter: 2011Q2

REPORT INFORMATION
  Report Type: 
  Country: None (occurrence: None)
  Receive Date: 20110617
  Receipt Date: 20110608
  Transmission Date: 20111010
  Serious: Yes (Other)
  Sender: FDA-Public Use
  Company Number: CH-JNJFOC-20110509572

PATIENT
  Sex: Female
  Weight: 59 kg

DRUGS (3)
  1. TOPAMAX [Suspect]
     Dosage: 150 MG IN THE MORNING
     Route: 048
     Dates: start: 20110101, end: 20110401
  2. TOPAMAX [Suspect]
     Indication: NERVOUS SYSTEM DISORDER
     Dosage: 75 MG IN THE MORNING AND 75 MG AT THE LUNCH TIME
     Route: 048
     Dates: start: 20110401
  3. TRAZODONE HCL [Concomitant]
     Route: 048

REACTIONS (1)
  - URINE COLOUR ABNORMAL [None]
